FAERS Safety Report 9608611 (Version 4)
Quarter: 2014Q1

REPORT INFORMATION
  Report Type: Spontaneous
  Country: IT (occurrence: IT)
  Receive Date: 20131009
  Receipt Date: 20140105
  Transmission Date: 20141002
  Serious: Yes (Other)
  Sender: FDA-Public Use
  Company Number: IT-PFIZER INC-2013287417

PATIENT
  Age: 42 Year
  Sex: Female

DRUGS (8)
  1. FARMORUBICINA [Suspect]
     Indication: BREAST CANCER
     Dosage: 125 MG, CYCLIC
     Route: 042
     Dates: start: 20080916, end: 20081119
  2. HERCEPTIN [Suspect]
     Indication: BREAST CANCER
     Dosage: 320 MG, CYCLIC
     Dates: start: 20090513, end: 20090626
  3. ENDOXAN-BAXTER [Suspect]
     Dosage: 840 MG, CYCLIC
     Route: 042
     Dates: start: 20080916, end: 20081119
  4. SOLDESAM [Concomitant]
     Indication: PREMEDICATION
     Dosage: 16 MG, UNK
     Route: 042
     Dates: start: 20080916, end: 20081119
  5. SOLDESAM [Concomitant]
     Dosage: 16 MG, UNK
     Dates: start: 20090513, end: 20090623
  6. RANIDIL [Concomitant]
     Indication: PREMEDICATION
     Dosage: 100 MG, UNK
     Route: 042
     Dates: start: 20080916, end: 20081119
  7. RANIDIL [Concomitant]
     Dosage: 50 MG, UNK
     Dates: start: 20090513, end: 20090623
  8. ALOXI [Concomitant]
     Indication: PREMEDICATION
     Dosage: 1 DF, UNK
     Route: 042
     Dates: start: 20080916, end: 20081119

REACTIONS (5)
  - Mitral valve incompetence [Recovered/Resolved]
  - Respiratory failure [Recovered/Resolved]
  - Ejection fraction decreased [Recovered/Resolved]
  - Left atrial dilatation [Recovered/Resolved]
  - Systolic dysfunction [Recovered/Resolved]
